FAERS Safety Report 26111341 (Version 1)
Quarter: 2025Q4

REPORT INFORMATION
  Report Type: Spontaneous
  Country: EU (occurrence: EU)
  Receive Date: 20251202
  Receipt Date: 20251202
  Transmission Date: 20260119
  Serious: Yes (Life-Threatening)
  Sender: ACCORD
  Company Number: None

PATIENT
  Age: 37 Year
  Sex: Male

DRUGS (7)
  1. LEVETIRACETAM [Suspect]
     Active Substance: LEVETIRACETAM
     Indication: Product used for unknown indication
     Dosage: STRENGTH: 500 MG
  2. DEXAMETHASONE [Suspect]
     Active Substance: DEXAMETHASONE
     Indication: Brain tumour operation
     Dosage: STRENGTH: 1 MG
     Dates: start: 20220328
  3. BETO 25 ZK [Concomitant]
     Dosage: DOSE: 1 UNIT, STRENGTH: 23.75 MG
  4. POTASSIUM CHLORIDE [Concomitant]
     Active Substance: POTASSIUM CHLORIDE
     Dosage: STRENGTH: 600 MG PROLONGED-RELEASE CAPSULES, HARD
  5. DEXAMETHASONE [Suspect]
     Active Substance: DEXAMETHASONE
     Indication: Brain tumour operation
     Dosage: STRENGTH: 1 MG
  6. DEXAMETHASONE [Suspect]
     Active Substance: DEXAMETHASONE
     Indication: Brain tumour operation
     Dosage: STRENGTH: 1 MG
  7. DEXAMETHASONE [Suspect]
     Active Substance: DEXAMETHASONE
     Indication: Brain tumour operation
     Dosage: STRENGTH: 1 MG

REACTIONS (3)
  - Acute respiratory failure [Unknown]
  - Altered state of consciousness [Unknown]
  - Epilepsy [Unknown]

NARRATIVE: CASE EVENT DATE: 20220405
